FAERS Safety Report 7568630-6 (Version None)
Quarter: 2011Q2

REPORT INFORMATION
  Report Type: 
  Country: None (occurrence: None)
  Receive Date: 20110623
  Receipt Date: 20110615
  Transmission Date: 20111010
  Serious: Yes (Other)
  Sender: FDA-Public Use
  Company Number: PHHY2011US52863

PATIENT
  Age: 16 Year
  Sex: Male

DRUGS (1)
  1. CEFTRIAXONE [Suspect]
     Indication: LYMPHADENITIS
     Dosage: 1 G, Q12H
     Route: 042

REACTIONS (1)
  - CHOLELITHIASIS [None]
